FAERS Safety Report 13558609 (Version 4)
Quarter: 2017Q3

REPORT INFORMATION
  Report Type: Spontaneous
  Country: US (occurrence: US)
  Receive Date: 20170518
  Receipt Date: 20170810
  Transmission Date: 20171127
  Serious: Yes (Other)
  Sender: FDA-Public Use
  Company Number: US-PFIZER INC-2017211880

PATIENT
  Age: 33 Year
  Sex: Female

DRUGS (3)
  1. EPINEPHRINE/LIDOCAINE HYDROCHLORIDE [Suspect]
     Active Substance: EPINEPHRINE\LIDOCAINE HYDROCHLORIDE
     Indication: MAMMOPLASTY
     Dosage: 90 ML, SINGLE (1 PERCENT LIDOCAINE AND 1 TO 100,000 RATIO OF EPINIPHRINE, 90 ML)
     Route: 042
     Dates: end: 20170504
  2. EPINEPHRINE/LIDOCAINE HYDROCHLORIDE [Suspect]
     Active Substance: EPINEPHRINE\LIDOCAINE HYDROCHLORIDE
     Dosage: 30 ML, UNK, (LIDOCAINE HCL 1 % + EPINEPHRINE 1:100,000 INJECTION)
     Dates: start: 20170504
  3. EPINEPHRINE/LIDOCAINE HYDROCHLORIDE [Suspect]
     Active Substance: EPINEPHRINE\LIDOCAINE HYDROCHLORIDE
     Dosage: 60 ML, UNK (LIDO 1% W/ EPI 1:10000, 60ML)
     Route: 042
     Dates: start: 20170504, end: 20170504

REACTIONS (2)
  - Drug ineffective [Recovered/Resolved]
  - Haemorrhage [Recovered/Resolved]

NARRATIVE: CASE EVENT DATE: 20170504
